FAERS Safety Report 4888628-6 (Version None)
Quarter: 2005Q4

REPORT INFORMATION
  Report Type: 
  Country: None (occurrence: None)
  Receive Date: 20051215
  Receipt Date: 20041119
  Transmission Date: 20060501
  Serious: No
  Sender: FDA-Public Use
  Company Number: 2004097732

PATIENT
  Age: 74 Year
  Sex: Male
  Weight: 100.2449 kg

DRUGS (5)
  1. BEXTRA [Suspect]
     Indication: INFLAMMATION
     Dosage: 20 MG (20 MG,1 IN 1 D),ORAL
     Route: 048
     Dates: start: 20030422, end: 20040401
  2. BEXTRA [Suspect]
     Indication: PAIN
     Dosage: 20 MG (20 MG,1 IN 1 D),ORAL
     Route: 048
     Dates: start: 20030422, end: 20040401
  3. FENOFIBRATE [Concomitant]
  4. EXZETIMIBE (EZETIMIBE) [Concomitant]
  5. NICOTINIC ACID [Concomitant]

REACTIONS (1)
  - RENAL FAILURE [None]
